FAERS Safety Report 4957486-3 (Version None)
Quarter: 2006Q1

REPORT INFORMATION
  Report Type: 
  Country: None (occurrence: None)
  Receive Date: 20060330
  Receipt Date: 20060327
  Transmission Date: 20060701
  Serious: Yes (Death, Other)
  Sender: FDA-Public Use
  Company Number: 2006UW05270

PATIENT
  Age: 28 Year
  Sex: Female

DRUGS (3)
  1. SEROQUEL [Suspect]
     Route: 048
  2. HALDOL [Concomitant]
     Dates: start: 20050401
  3. BENZTROPINE MESYLATE [Concomitant]
     Dates: start: 20050401

REACTIONS (4)
  - ABASIA [None]
  - ARRHYTHMIA [None]
  - DYSPNOEA [None]
  - SHOCK [None]
